FAERS Safety Report 17835763 (Version 1)
Quarter: 2020Q2

REPORT INFORMATION
  Report Type: Spontaneous
  Country: JP (occurrence: JP)
  Receive Date: 20200528
  Receipt Date: 20200528
  Transmission Date: 20200714
  Serious: Yes (Other)
  Sender: FDA-Public Use
  Company Number: JP-PFIZER INC-2020197112

PATIENT
  Sex: Male

DRUGS (1)
  1. CEFTRIAXONE SODIUM BAG 1G PFIZER [Suspect]
     Active Substance: CEFTRIAXONE SODIUM
     Dosage: UNK
     Dates: end: 20200513

REACTIONS (9)
  - Lymphocyte count decreased [Unknown]
  - Injection site pruritus [Unknown]
  - Diarrhoea [Not Recovered/Not Resolved]
  - Injection site bruising [Unknown]
  - White blood cell count increased [Unknown]
  - Thrombosis [Unknown]
  - Product administration error [Unknown]
  - Injection site pain [Recovered/Resolved]
  - Anorectal swelling [Not Recovered/Not Resolved]
